FAERS Safety Report 6213826-9 (Version None)
Quarter: 2009Q2

REPORT INFORMATION
  Report Type: 
  Country: None (occurrence: None)
  Receive Date: 20090604
  Receipt Date: 20090522
  Transmission Date: 20091009
  Serious: Yes (Hospitalization)
  Sender: FDA-Public Use
  Company Number: US-RANBAXY-2009RR-24517

PATIENT
  Age: 56 Year
  Sex: Female

DRUGS (4)
  1. ATORVASTATIN/AMLODIPINE [Suspect]
  2. AMLODIPINE [Suspect]
  3. NISOLDIPINE [Suspect]
  4. ISRADIPINE [Suspect]

REACTIONS (1)
  - SMALL BOWEL ANGIOEDEMA [None]
